FAERS Safety Report 6468930-7 (Version None)
Quarter: 2009Q4

REPORT INFORMATION
  Report Type: 
  Country: None (occurrence: None)
  Receive Date: 20091203
  Receipt Date: 20090423
  Transmission Date: 20100525
  Serious: Yes (Other)
  Sender: FDA-Public Use
  Company Number: US-ELI_LILLY_AND_COMPANY-US200604004777

PATIENT
  Sex: Female
  Weight: 112.2 kg

DRUGS (12)
  1. CYMBALTA [Suspect]
     Indication: NEUROPATHY PERIPHERAL
     Dosage: 60 MG, UNK
     Route: 048
     Dates: start: 20060212, end: 20060404
  2. CYMBALTA [Suspect]
     Dosage: 1 D/F, UNK
     Dates: start: 20060421
  3. DABIGATRAN ETEXILATE [Concomitant]
     Indication: EMBOLIC STROKE
     Dosage: 150 MG, 2/D
     Route: 048
     Dates: start: 20060109, end: 20060404
  4. TOPROL-XL [Concomitant]
     Dosage: 100 MG, UNK
  5. COZAAR [Concomitant]
     Dosage: 100 MG, UNK
  6. HYDROCHLORZIDE [Concomitant]
     Dosage: 25 MG, DAILY (1/D)
  7. ZOCOR [Concomitant]
     Dosage: 40 MG, DAILY (1/D)
  8. NEURONTIN [Concomitant]
     Dosage: 600 MG, 2/D
  9. METFORMIN HCL [Concomitant]
     Dosage: 500 MG, UNK
  10. VITAMIN B COMPLEX CAP [Concomitant]
  11. CALCIUM CARBONATE [Concomitant]
  12. FLONASE [Concomitant]
     Dosage: UNK, AS NEEDED

REACTIONS (2)
  - ALANINE AMINOTRANSFERASE INCREASED [None]
  - ASPARTATE AMINOTRANSFERASE INCREASED [None]
